FAERS Safety Report 5087166-8 (Version None)
Quarter: 2006Q3

REPORT INFORMATION
  Report Type: 
  Country: None (occurrence: None)
  Receive Date: 20060823
  Receipt Date: 20060816
  Transmission Date: 20061208
  Serious: Yes (Other)
  Sender: FDA-Public Use
  Company Number: GB-ALLERGAN-0603997US

PATIENT
  Age: 74 Year
  Sex: Female

DRUGS (8)
  1. PRED MILD[R] [Suspect]
     Route: 047
  2. POVIDONE IODINE [Suspect]
     Indication: PROPHYLAXIS
     Route: 061
  3. LIDOCAINE [Suspect]
     Indication: ANAESTHESIA
     Dosage: 4 ML, SINGLE
     Route: 047
  4. HYALURONIDASE [Suspect]
     Indication: ANAESTHESIA
     Dosage: 4 ML, SINGLE
     Route: 047
  5. CHLORAMPHENICOL UNSPEC [Suspect]
     Indication: DRUG USE FOR UNKNOWN INDICATION
     Route: 047
  6. CEFUROXIME [Suspect]
     Indication: POSTOPERATIVE CARE
     Route: 058
  7. BUPIVACAINE [Suspect]
     Indication: ANAESTHESIA
     Dosage: 4 ML, SINGLE
     Route: 047
  8. PROXYMETACAINE [Concomitant]
     Indication: DRUG USE FOR UNKNOWN INDICATION

REACTIONS (2)
  - DRUG HYPERSENSITIVITY [None]
  - PAROPHTHALMIA [None]
